FAERS Safety Report 7372194-X (Version None)
Quarter: 2011Q1

REPORT INFORMATION
  Report Type: 
  Country: None (occurrence: None)
  Receive Date: 20110324
  Receipt Date: 20110316
  Transmission Date: 20110831
  Serious: Yes (Hospitalization)
  Sender: FDA-Public Use
  Company Number: FR-SANOFI-AVENTIS-2011SA015784

PATIENT
  Age: 81 Year
  Sex: Male

DRUGS (3)
  1. MULTAQ [Suspect]
     Route: 048
     Dates: start: 20100606
  2. PLAVIX [Concomitant]
     Indication: STENT PLACEMENT
     Route: 048
  3. ASPIRIN [Concomitant]
     Indication: STENT PLACEMENT
     Route: 065

REACTIONS (6)
  - NAUSEA [None]
  - PANCREATOBILIARY SPHINCTEROTOMY [None]
  - CHOLECYSTITIS ACUTE [None]
  - CHOLECYSTITIS INFECTIVE [None]
  - ABDOMINAL PAIN UPPER [None]
  - CHOLECYSTECTOMY [None]
